FAERS Safety Report 24774910 (Version 1)
Quarter: 2024Q4

REPORT INFORMATION
  Report Type: Report from Study
  Country: NL (occurrence: NL)
  Receive Date: 20241226
  Receipt Date: 20241226
  Transmission Date: 20250115
  Serious: Yes (Other)
  Sender: JOHNSON AND JOHNSON
  Company Number: NL-JNJFOC-20241247159

PATIENT
  Age: 76 Year
  Sex: Male

DRUGS (3)
  1. DARATUMUMAB [Suspect]
     Active Substance: DARATUMUMAB
     Indication: Plasma cell myeloma
     Dosage: 15
     Dates: start: 20240917, end: 20240917
  2. DARATUMUMAB [Suspect]
     Active Substance: DARATUMUMAB
     Dosage: 15
     Dates: start: 20241001, end: 20241001
  3. DARATUMUMAB [Suspect]
     Active Substance: DARATUMUMAB
     Dates: start: 20240924, end: 20240924

REACTIONS (2)
  - Atrial fibrillation [Recovering/Resolving]
  - Pollakiuria [Recovering/Resolving]

NARRATIVE: CASE EVENT DATE: 20240925
